FAERS Safety Report 5527373-0 (Version None)
Quarter: 2007Q4

REPORT INFORMATION
  Report Type: 
  Country: None (occurrence: None)
  Receive Date: 20071123
  Receipt Date: 20071107
  Transmission Date: 20080405
  Serious: Yes (Death)
  Sender: FDA-Public Use
  Company Number: 2007S1008350

PATIENT
  Age: 61 Year
  Sex: Female

DRUGS (1)
  1. PHOSPHOSODA FLAVOR NOT SPECIFIED [Suspect]
     Indication: COLONOSCOPY
     Dosage: PO
     Route: 048

REACTIONS (8)
  - DEHYDRATION [None]
  - ELECTROLYTE IMBALANCE [None]
  - GASTROINTESTINAL NECROSIS [None]
  - HYPERPHOSPHATAEMIA [None]
  - INTESTINAL ISCHAEMIA [None]
  - RENAL FAILURE [None]
  - SEPSIS [None]
  - THROMBOSIS [None]
